FAERS Safety Report 7757884 (Version 4)
Quarter: 2013Q4

REPORT INFORMATION
  Report Type: Spontaneous
  Country: US (occurrence: US)
  Receive Date: 20110112
  Receipt Date: 20131029
  Transmission Date: 20140711
  Serious: Yes (Hospitalization, Other)
  Sender: FDA-Public Use
  Company Number: US-BAYER-2011-003127

PATIENT
  Age: 24 Year
  Sex: Female
  Weight: 113 kg

DRUGS (10)
  1. YAZ [Suspect]
     Indication: CONTRACEPTION
     Dosage: UNK
     Dates: start: 1998, end: 2010
  2. YAZ [Suspect]
     Indication: ACNE
  3. YASMIN [Suspect]
     Indication: CONTRACEPTION
     Dosage: UNK
     Dates: start: 1998, end: 2010
  4. YASMIN [Suspect]
     Indication: ACNE
  5. OCELLA [Suspect]
     Indication: CONTRACEPTION
     Dosage: UNK
     Dates: start: 2002, end: 2010
  6. OCELLA [Suspect]
     Indication: ACNE
  7. ADVIL [Concomitant]
     Dosage: UNK
     Dates: start: 1988
  8. NAPROSYN [Concomitant]
     Dosage: UNK
     Dates: start: 1988
  9. ALBUTEROL [Concomitant]
     Dosage: UNK UNK, PRN
     Dates: start: 1995
  10. RANITIDINE [Concomitant]
     Dosage: UNK UNK, PRN

REACTIONS (8)
  - Gallbladder disorder [None]
  - Abdominal pain upper [None]
  - Pain [None]
  - Emotional distress [None]
  - Anxiety [None]
  - Fear [None]
  - Cholecystitis chronic [None]
  - Cholelithiasis [None]
